FAERS Safety Report 21884314 (Version 2)
Quarter: 2023Q1

REPORT INFORMATION
  Report Type: Spontaneous
  Country: CA (occurrence: CA)
  Receive Date: 20230119
  Receipt Date: 20230209
  Transmission Date: 20230418
  Serious: Yes (Hospitalization, Other)
  Sender: FDA-Public Use
  Company Number: CA-TEVA-2023-CA-2845874

PATIENT
  Age: 70 Year
  Sex: Male

DRUGS (9)
  1. LEUCOVORIN [Suspect]
     Active Substance: LEUCOVORIN
     Indication: Acinar cell carcinoma of pancreas
     Dosage: RECEIVED 11 CYCLES, 400 MG/M2 ONCE IN 2 WEEKS
     Route: 065
  2. PREDNISOLONE [Suspect]
     Active Substance: PREDNISOLONE
     Indication: Gout
     Route: 065
  3. PREDNISOLONE [Suspect]
     Active Substance: PREDNISOLONE
     Indication: Seronegative arthritis
  4. OXALIPLATIN [Suspect]
     Active Substance: OXALIPLATIN
     Indication: Acinar cell carcinoma of pancreas
     Dosage: RECEIVED 11 CYCLES, 65 MG/M2 ONCE IN 2 WEEKS
     Route: 065
  5. IRINOTECAN [Suspect]
     Active Substance: IRINOTECAN
     Indication: Acinar cell carcinoma of pancreas
     Dosage: RECEIVED 11 CYCLES, 120 MG/M2 ONCE IN 2 WEEKS
     Route: 065
  6. DEXAMETHASONE [Suspect]
     Active Substance: DEXAMETHASONE
     Indication: Product used for unknown indication
     Route: 065
  7. FLUOROURACIL [Suspect]
     Active Substance: FLUOROURACIL
     Indication: Acinar cell carcinoma of pancreas
     Dosage: RECEIVED 11 CYCLES, 4200 MG/M2 ONCE IN 2 WEEKS
     Route: 065
  8. OLAPARIB [Suspect]
     Active Substance: OLAPARIB
     Indication: Acinar cell carcinoma of pancreas
     Dosage: 300 MILLIGRAM DAILY; TWICE DAILY
     Route: 065
  9. NAPROXEN [Concomitant]
     Active Substance: NAPROXEN
     Indication: Seronegative arthritis
     Route: 065

REACTIONS (3)
  - Substance-induced psychotic disorder [Unknown]
  - Peripheral sensory neuropathy [Unknown]
  - Fatigue [Unknown]
